FAERS Safety Report 14028043 (Version 1)
Quarter: 2017Q3

REPORT INFORMATION
  Report Type: Spontaneous
  Country: US (occurrence: None)
  Receive Date: 20170930
  Receipt Date: 20170930
  Transmission Date: 20171128
  Serious: Yes (Death, Hospitalization)
  Sender: FDA-Public Use
  Company Number: None

PATIENT
  Age: 7 Year
  Sex: Male
  Weight: 23.3 kg

DRUGS (2)
  1. CYCLOPHOSPHAMIDE. [Suspect]
     Active Substance: CYCLOPHOSPHAMIDE
     Dates: end: 20161106
  2. FLUDARABINE PHOSPHATE. [Suspect]
     Active Substance: FLUDARABINE PHOSPHATE
     Dates: end: 20161031

REACTIONS (9)
  - Acute respiratory distress syndrome [None]
  - Chronic graft versus host disease in skin [None]
  - Graft versus host disease in gastrointestinal tract [None]
  - Haemolysis [None]
  - Adenovirus infection [None]
  - Thrombotic microangiopathy [None]
  - Pulmonary alveolar haemorrhage [None]
  - Renal failure [None]
  - Hyperbilirubinaemia [None]

NARRATIVE: CASE EVENT DATE: 20161029
